FAERS Safety Report 4602590-2 (Version None)
Quarter: 2005Q1

REPORT INFORMATION
  Report Type: 
  Country: None (occurrence: None)
  Receive Date: 20050307
  Receipt Date: 20050222
  Transmission Date: 20050727
  Serious: Yes (Hospitalization, Other)
  Sender: FDA-Public Use
  Company Number: 2005036735

PATIENT
  Age: 71 Year
  Sex: Male
  Weight: 92.0802 kg

DRUGS (8)
  1. ZOLOFT [Suspect]
     Indication: DEPRESSION
     Dosage: 200 MG (100 MG, 1 D), ORAL
     Route: 048
     Dates: start: 20041101
  2. RISPERIDONE [Suspect]
     Indication: ILL-DEFINED DISORDER
     Dosage: ORAL
     Route: 048
  3. LANSOPRAZOLE [Concomitant]
  4. TAMSULOSIN HYDROCHLORIDE (TAMSULOSIN HYDROCHLORIDE) [Concomitant]
  5. LEVOTHYROXINE SODIUM [Concomitant]
  6. LORATADINE [Concomitant]
  7. TRAMADOL HCL [Concomitant]
  8. LORAZEPAM [Concomitant]

REACTIONS (12)
  - ABDOMINAL PAIN [None]
  - ANOREXIA [None]
  - ANXIETY [None]
  - BLOOD POTASSIUM DECREASED [None]
  - DRUG INEFFECTIVE [None]
  - HYPERHIDROSIS [None]
  - INCOHERENT [None]
  - INGUINAL HERNIA REPAIR [None]
  - NAUSEA [None]
  - OESOPHAGEAL DISORDER [None]
  - TREMOR [None]
  - WEIGHT DECREASED [None]
